FAERS Safety Report 11490905 (Version 6)
Quarter: 2016Q4

REPORT INFORMATION
  Report Type: Report from Study
  Country: FR (occurrence: FR)
  Receive Date: 20150910
  Receipt Date: 20161206
  Transmission Date: 20170206
  Serious: Yes (Hospitalization, Disabling, Other)
  Sender: FDA-Public Use
  Company Number: FR-009507513-1509FRA005098

PATIENT
  Age: 85 Year
  Sex: Female

DRUGS (13)
  1. DETICENE [Concomitant]
     Active Substance: DACARBAZINE
     Indication: MALIGNANT MELANOMA STAGE IV
     Dosage: 1000 MG/M2, Q3W
     Route: 042
     Dates: start: 20150220, end: 20150404
  2. PEMBROLIZUMAB. [Suspect]
     Active Substance: PEMBROLIZUMAB
     Dosage: 145 MG (2 MG/KG), Q3W
     Route: 042
     Dates: start: 20150129, end: 20150129
  3. EUPRESSYL [Concomitant]
     Active Substance: URAPIDIL
     Dosage: 2 DF, BID
  4. LAROXYL [Concomitant]
     Active Substance: AMITRIPTYLINE
     Dosage: 8 GTT, QPM
  5. AMLOR [Concomitant]
     Active Substance: AMLODIPINE BESYLATE
     Indication: HYPERTENSION
     Dosage: DAILY DOSE 10 MG, BID
     Route: 048
  6. ALPRAZOLAM. [Concomitant]
     Active Substance: ALPRAZOLAM
     Dosage: 1 DF, BID
  7. SODIUM CHLORIDE. [Concomitant]
     Active Substance: SODIUM CHLORIDE
     Dosage: 500 ML, HS
     Route: 058
  8. ACETAMINOPHEN. [Concomitant]
     Active Substance: ACETAMINOPHEN
     Dosage: UNK, PRN
  9. PEMBROLIZUMAB. [Suspect]
     Active Substance: PEMBROLIZUMAB
     Indication: MALIGNANT MELANOMA STAGE IV
     Dosage: 145 MG (2 MG/KG), Q3W
     Route: 042
     Dates: start: 20140917, end: 20150108
  10. CRESTOR [Concomitant]
     Active Substance: ROSUVASTATIN CALCIUM
     Dosage: 1 DF, UNK
  11. ESIDREX [Concomitant]
     Active Substance: HYDROCHLOROTHIAZIDE
     Indication: HYPERTENSION
     Dosage: 12.5 MG, QD
     Route: 048
  12. RENITEC (ENALAPRIL MALEATE) [Concomitant]
     Dosage: 20 MG, QAM
  13. OXYNORM [Concomitant]
     Active Substance: OXYCODONE HYDROCHLORIDE
     Dosage: 5 MG, X6 /DAY PRN

REACTIONS (1)
  - Polyneuropathy [Not Recovered/Not Resolved]

NARRATIVE: CASE EVENT DATE: 201506
